FAERS Safety Report 9765642 (Version 2)
Quarter: 2013Q4

REPORT INFORMATION
  Report Type: Spontaneous
  Country: US (occurrence: US)
  Receive Date: 20131217
  Receipt Date: 20131220
  Transmission Date: 20140711
  Serious: No
  Sender: FDA-Public Use
  Company Number: US-BIOGENIDEC-2013BI111933

PATIENT
  Age: 54 Year
  Sex: Female

DRUGS (9)
  1. TECFIDERA [Suspect]
     Indication: MULTIPLE SCLEROSIS
     Route: 048
     Dates: start: 20131101
  2. TECFIDERA [Suspect]
     Indication: MULTIPLE SCLEROSIS
     Route: 048
     Dates: start: 20131108, end: 20131113
  3. TECFIDERA [Suspect]
     Indication: MULTIPLE SCLEROSIS
     Route: 048
     Dates: start: 20131129
  4. CITALOPRAM HBR [Concomitant]
  5. FIORCET [Concomitant]
  6. GABAPENTIN [Concomitant]
  7. CELEXA [Concomitant]
  8. ATORVASTATIN [Concomitant]
  9. HUMALOG [Concomitant]

REACTIONS (7)
  - Oropharyngeal pain [Unknown]
  - Flushing [Unknown]
  - Abdominal discomfort [Unknown]
  - Diarrhoea [Not Recovered/Not Resolved]
  - Abdominal pain [Unknown]
  - Vomiting [Unknown]
  - Nausea [Not Recovered/Not Resolved]
